FAERS Safety Report 7742343-X (Version None)
Quarter: 2011Q3

REPORT INFORMATION
  Report Type: 
  Country: None (occurrence: None)
  Receive Date: 20110912
  Receipt Date: 20100114
  Transmission Date: 20111222
  Serious: No
  Sender: FDA-Public Use
  Company Number: US-BAYER-201011625NA

PATIENT
  Age: 26 Year
  Sex: Female

DRUGS (2)
  1. NUVARING [Concomitant]
     Dosage: UNK
  2. MIRENA [Suspect]
     Indication: CONTRACEPTION
     Dosage: 20 ?G/D, CONT
     Route: 015
     Dates: start: 20090821

REACTIONS (2)
  - DISCOMFORT [None]
  - DEVICE DISLOCATION [None]
